FAERS Safety Report 4433807-5 (Version None)
Quarter: 2004Q3

REPORT INFORMATION
  Report Type: 
  Country: None (occurrence: None)
  Receive Date: 20040825
  Receipt Date: 20040811
  Transmission Date: 20050211
  Serious: Yes (Death)
  Sender: FDA-Public Use
  Company Number: MK200408-0129-1

PATIENT
  Age: 53 Year
  Sex: Female

DRUGS (2)
  1. TOFRANIL [Suspect]
     Indication: PSYCHOTIC DISORDER
     Dosage: 150MG, DAILY
  2. LEVOMEPROMAZINE [Suspect]
     Indication: PSYCHOTIC DISORDER

REACTIONS (2)
  - ARRHYTHMIA [None]
  - SUDDEN DEATH [None]
